FAERS Safety Report 21217931 (Version 2)
Quarter: 2024Q2

REPORT INFORMATION
  Report Type: Spontaneous
  Country: US (occurrence: US)
  Receive Date: 20220816
  Receipt Date: 20240628
  Transmission Date: 20240716
  Serious: No
  Sender: FDA-Public Use
  Company Number: US-ROCHE-3121450

PATIENT
  Age: 40 Year
  Sex: Female

DRUGS (1)
  1. ALECENSA [Suspect]
     Active Substance: ALECTINIB HYDROCHLORIDE
     Indication: Lung neoplasm malignant
     Dosage: 4 X150 MG PILLS
     Route: 048
     Dates: start: 201507, end: 202303

REACTIONS (2)
  - Lung disorder [Unknown]
  - Bone disorder [Unknown]
